FAERS Safety Report 4824507-8 (Version None)
Quarter: 2005Q4

REPORT INFORMATION
  Report Type: 
  Country: None (occurrence: None)
  Receive Date: 20051108
  Receipt Date: 20051028
  Transmission Date: 20060501
  Serious: Yes (Other)
  Sender: FDA-Public Use
  Company Number: FR_050506476

PATIENT
  Age: 81 Year
  Sex: Female

DRUGS (4)
  1. FORTEO [Suspect]
     Indication: OSTEOPOROSIS
     Dosage: 20 UG DAY
     Dates: start: 20041001
  2. ROHYPNOL (FLUNITRAZEPAM) [Concomitant]
  3. ALEVE [Concomitant]
  4. OROCAL D(3) [Concomitant]

REACTIONS (5)
  - HEADACHE [None]
  - HYPOTENSION [None]
  - NAUSEA [None]
  - TACHYCARDIA [None]
  - VERTIGO [None]
